FAERS Safety Report 4533477-1 (Version None)
Quarter: 2004Q4

REPORT INFORMATION
  Report Type: 
  Country: None (occurrence: None)
  Receive Date: 20041221
  Receipt Date: 20031121
  Transmission Date: 20050328
  Serious: Yes (Hospitalization, Other)
  Sender: FDA-Public Use
  Company Number: US-MERCK-0311USA02526

PATIENT
  Age: 61 Year
  Sex: Female
  Weight: 65 kg

DRUGS (31)
  1. VIOXX [Suspect]
     Indication: ARTHRITIS
     Route: 048
     Dates: start: 20010131, end: 20011110
  2. VIOXX [Suspect]
     Indication: PAIN
     Route: 048
     Dates: start: 20010131, end: 20011110
  3. PREVACID [Concomitant]
     Indication: GASTROOESOPHAGEAL REFLUX DISEASE
     Route: 065
  4. METHYLPREDNISOLONE [Concomitant]
     Indication: INFLAMMATION
     Route: 065
  5. ESTRADIOL [Concomitant]
     Indication: HORMONE REPLACEMENT THERAPY
     Route: 048
     Dates: start: 20010101, end: 20020101
  6. CLONAZEPAM [Concomitant]
     Indication: CONVULSION PROPHYLAXIS
     Route: 065
  7. VANTIN [Concomitant]
     Indication: ANTIBACTERIAL PROPHYLAXIS
     Route: 065
  8. MECLIZINE [Concomitant]
     Indication: MOTION SICKNESS
     Route: 065
  9. ACETAMINOPHEN AND HYDROCODONE BITARTRATE [Concomitant]
     Indication: ANALGESIC EFFECT
     Route: 065
     Dates: start: 20010101, end: 20010101
  10. SULFAMETHOXAZOLE AND TRIMETHOPRIM [Concomitant]
     Indication: URINARY TRACT INFECTION
     Route: 065
  11. SERZONE [Concomitant]
     Indication: DEPRESSION
     Route: 048
     Dates: start: 20010131, end: 20020101
  12. SERZONE [Concomitant]
     Route: 048
  13. ALBUTEROL [Concomitant]
     Indication: ASTHMA
     Route: 065
  14. ZYRTEC [Concomitant]
     Indication: HYPERSENSITIVITY
     Route: 065
  15. PREDNISONE [Concomitant]
     Indication: HYPERSENSITIVITY
     Route: 065
  16. CEPHALEXIN [Concomitant]
     Indication: ANTIBACTERIAL PROPHYLAXIS
     Route: 065
  17. AUGMENTIN '125' [Concomitant]
     Indication: ANTIBACTERIAL PROPHYLAXIS
     Route: 065
  18. ALLEGRA [Concomitant]
     Indication: HYPERSENSITIVITY
     Route: 065
  19. FLONASE [Concomitant]
     Indication: HYPERSENSITIVITY
     Route: 065
  20. CYANOCOBALAMIN [Concomitant]
     Indication: ANAEMIA
     Route: 051
  21. CYANOCOBALAMIN [Concomitant]
     Indication: VITAMIN B12 DEFICIENCY
     Route: 051
  22. REMERON [Concomitant]
     Indication: DEPRESSION
     Route: 065
  23. ACIPHEX [Concomitant]
     Indication: GASTROOESOPHAGEAL REFLUX DISEASE
     Route: 065
  24. TEQUIN [Concomitant]
     Indication: ANTIBACTERIAL PROPHYLAXIS
     Route: 065
  25. DIOVAN [Concomitant]
     Route: 048
  26. VERAPAMIL MSD LP [Concomitant]
     Route: 048
     Dates: start: 20010101
  27. ASPIRIN [Concomitant]
     Route: 048
  28. ASPIRIN [Concomitant]
     Route: 048
     Dates: start: 20011002
  29. PROMETRIUM [Concomitant]
     Indication: HYPERSENSITIVITY
     Route: 048
     Dates: start: 20010101, end: 20020101
  30. MOBIC [Concomitant]
     Route: 048
  31. PROMETHAZINE [Concomitant]
     Route: 048

REACTIONS (43)
  - ANAEMIA [None]
  - ANGINA PECTORIS [None]
  - ANGINA UNSTABLE [None]
  - ANXIETY [None]
  - APPLICATION SITE BURNING [None]
  - APPLICATION SITE PRURITUS [None]
  - ARTHRALGIA [None]
  - BLOOD GLUCOSE INCREASED [None]
  - BLOOD UREA DECREASED [None]
  - CARDIAC MURMUR [None]
  - CHEST DISCOMFORT [None]
  - CHEST PAIN [None]
  - CORONARY ARTERY ATHEROSCLEROSIS [None]
  - CORONARY ARTERY STENOSIS [None]
  - DEPRESSION [None]
  - DIZZINESS [None]
  - DYSPNOEA [None]
  - DYSPNOEA EXERTIONAL [None]
  - DYSPNOEA PAROXYSMAL NOCTURNAL [None]
  - ELECTROCARDIOGRAM Q WAVES [None]
  - EXERCISE TOLERANCE DECREASED [None]
  - GASTROOESOPHAGEAL REFLUX DISEASE [None]
  - HAEMODILUTION [None]
  - HYPERHIDROSIS [None]
  - HYPERTENSION [None]
  - HYPOAESTHESIA [None]
  - MITRAL VALVE PROLAPSE [None]
  - MYOCARDIAL INFARCTION [None]
  - MYOCARDIAL ISCHAEMIA [None]
  - NAUSEA [None]
  - NICOTINE DEPENDENCE [None]
  - OPERATIVE HAEMORRHAGE [None]
  - ORTHOPNOEA [None]
  - PAIN [None]
  - PALPITATIONS [None]
  - PANIC ATTACK [None]
  - PARAESTHESIA [None]
  - PERICARDIAL EFFUSION [None]
  - PLEURITIC PAIN [None]
  - STOMACH DISCOMFORT [None]
  - SUPRAVENTRICULAR TACHYCARDIA [None]
  - VAGINAL HAEMORRHAGE [None]
  - VISION BLURRED [None]
